FAERS Safety Report 4899134-7 (Version None)
Quarter: 2006Q1

REPORT INFORMATION
  Report Type: 
  Country: None (occurrence: None)
  Receive Date: 20060202
  Receipt Date: 20060124
  Transmission Date: 20060701
  Serious: Yes (Death, Hospitalization)
  Sender: FDA-Public Use
  Company Number: KR-SANOFI-SYNTHELABO-A01200600588

PATIENT
  Sex: Male
  Weight: 54 kg

DRUGS (1)
  1. PLAVIX [Suspect]
     Indication: PROPHYLAXIS
     Route: 048
     Dates: start: 20041228, end: 20051121

REACTIONS (1)
  - PULMONARY OEDEMA [None]
